FAERS Safety Report 17849420 (Version 1)
Quarter: 2020Q2

REPORT INFORMATION
  Report Type: Spontaneous
  Country: US (occurrence: US)
  Receive Date: 20200601
  Receipt Date: 20200601
  Transmission Date: 20200714
  Serious: Yes (Hospitalization)
  Sender: FDA-Public Use
  Company Number: None

PATIENT
  Sex: Male

DRUGS (1)
  1. CAPECITABINE TAB 500MG NOVADOZ PHARMACEUTCALS [Suspect]
     Active Substance: CAPECITABINE
     Indication: COLON CANCER
     Dosage: ON HOLD
     Route: 048
     Dates: start: 20140710

REACTIONS (2)
  - Diarrhoea [None]
  - Palmar-plantar erythrodysaesthesia syndrome [None]
